FAERS Safety Report 6833673-4 (Version None)
Quarter: 2010Q3

REPORT INFORMATION
  Report Type: 
  Country: None (occurrence: None)
  Receive Date: 20100712
  Receipt Date: 20070329
  Transmission Date: 20110219
  Serious: No
  Sender: FDA-Public Use
  Company Number: US-PFIZER INC-2007027051

PATIENT
  Sex: Male
  Weight: 104.33 kg

DRUGS (4)
  1. CHANTIX [Suspect]
     Indication: SMOKING CESSATION THERAPY
     Dates: start: 20070326, end: 20070328
  2. NORCO [Interacting]
     Indication: INTERVERTEBRAL DISC PROTRUSION
  3. AVALIDE [Concomitant]
  4. RITALIN [Concomitant]

REACTIONS (6)
  - DECREASED APPETITE [None]
  - DRUG INTERACTION [None]
  - HYPERHIDROSIS [None]
  - PAIN [None]
  - SOMNOLENCE [None]
  - THERAPEUTIC RESPONSE DECREASED [None]
